FAERS Safety Report 24685383 (Version 1)
Quarter: 2024Q4

REPORT INFORMATION
  Report Type: Spontaneous
  Country: CN (occurrence: CN)
  Receive Date: 20241202
  Receipt Date: 20241202
  Transmission Date: 20250115
  Serious: Yes (Other)
  Sender: BAXTER
  Company Number: None

PATIENT
  Age: 40 Year
  Sex: Male
  Weight: 65 kg

DRUGS (9)
  1. CYCLOPHOSPHAMIDE [Suspect]
     Active Substance: CYCLOPHOSPHAMIDE
     Indication: Acute lymphocytic leukaemia
     Dosage: 1.3 G, ONE TIME IN ONE DAY, DILUTED WITH 100 ML OF SODIUM CHLORIDE- IVGTT (FIRST CYCLE OF CHEMOTHERA
     Route: 041
     Dates: start: 20240706, end: 20240706
  2. CYCLOPHOSPHAMIDE [Suspect]
     Active Substance: CYCLOPHOSPHAMIDE
     Dosage: 1.3 G, ONE TIME IN ONE DAY, DILUTED WITH 500 ML OF SODIUM CHLORIDE- IVGTT
     Route: 041
     Dates: start: 20240721, end: 20240721
  3. PEGASPARGASE [Suspect]
     Active Substance: PEGASPARGASE
     Indication: Acute lymphocytic leukaemia
     Dosage: 3750 IU, ONE TIME IN ONE DAY, DILUTED WITH 250 ML OF GLUCOSE
     Route: 041
     Dates: start: 20240715, end: 20240715
  4. DAUNORUBICIN HYDROCHLORIDE [Suspect]
     Active Substance: DAUNORUBICIN HYDROCHLORIDE
     Indication: Acute lymphocytic leukaemia
     Dosage: 50 MG, ONE TIME IN ONE DAY, IVGTT, (FIRST CYCLE OF CHEMOTHERAPY)
     Route: 041
     Dates: start: 20240706, end: 20240706
  5. VINCRISTINE SULFATE [Suspect]
     Active Substance: VINCRISTINE SULFATE
     Indication: Acute lymphocytic leukaemia
     Dosage: 2 MG, ONE TIME IN ONE DAY, IVGTT (FIRST CYCLE OF CHEMOTHERAPY)
     Route: 041
     Dates: start: 20240706, end: 20240706
  6. VINCRISTINE SULFATE [Suspect]
     Active Substance: VINCRISTINE SULFATE
     Dosage: 2 MG, ONE TIME IN ONE DAY, IVGTT
     Route: 041
     Dates: start: 20240721, end: 20240721
  7. DEXTROSE [Suspect]
     Active Substance: DEXTROSE MONOHYDRATE
     Indication: Medication dilution
     Dosage: 250 ML, ONE TIME IN ONE DAY, USED TO DILUTE 3750 IU OF PEGASPARGASE
     Route: 041
     Dates: start: 20240715, end: 20240715
  8. SODIUM CHLORIDE [Suspect]
     Active Substance: SODIUM CHLORIDE
     Indication: Medication dilution
     Dosage: 100 ML, ONE TIME IN ONE DAY, USED TO DILUTE 1.3 G OF CYCLOPHOSPHAMIDE
     Route: 041
     Dates: start: 20240706, end: 20240706
  9. SODIUM CHLORIDE [Suspect]
     Active Substance: SODIUM CHLORIDE
     Dosage: 500 ML, ONE TIME IN ONE DAY, USED TO DILUTE 1.3 G OF CYCLOPHOSPHAMIDE
     Route: 041
     Dates: start: 20240721, end: 20240721

REACTIONS (1)
  - Coagulopathy [Recovering/Resolving]

NARRATIVE: CASE EVENT DATE: 20240719
